FAERS Safety Report 6274937-5 (Version None)
Quarter: 2009Q3

REPORT INFORMATION
  Report Type: 
  Country: None (occurrence: None)
  Receive Date: 20090717
  Receipt Date: 20090708
  Transmission Date: 20100115
  Serious: Yes (Other)
  Sender: FDA-Public Use
  Company Number: GXKR2009DE07868

PATIENT
  Sex: Male
  Weight: 0.8 kg

DRUGS (1)
  1. PREDNISOLONE [Suspect]
     Dosage: MATERNAL DOSE: 50 MG/DAY, REDUCED DAILY BY 5 MG DOWN TO 25 MG/DAY (2 CYCLES), TRANSPLACENTAL
     Route: 064

REACTIONS (3)
  - CAESAREAN SECTION [None]
  - MATERNAL DRUGS AFFECTING FOETUS [None]
  - PREMATURE BABY [None]
